FAERS Safety Report 9173566 (Version 1)
Quarter: 2013Q1

REPORT INFORMATION
  Report Type: Spontaneous
  Country: FR (occurrence: FR)
  Receive Date: 20130320
  Receipt Date: 20130320
  Transmission Date: 20140127
  Serious: Yes (Other)
  Sender: FDA-Public Use
  Company Number: FR-MYLANLABS-2013S1005289

PATIENT
  Age: 26 Year
  Sex: Male

DRUGS (5)
  1. CLOPIXOL [Suspect]
     Indication: SCHIZOPHRENIA, PARANOID TYPE
     Dosage: 2 VIALS ON D1, D2
     Route: 065
  2. CYAMEMAZINE [Suspect]
     Indication: SCHIZOPHRENIA, PARANOID TYPE
     Route: 065
  3. RISPERIDONE [Suspect]
     Indication: SCHIZOPHRENIA, PARANOID TYPE
     Route: 065
  4. TRIMEPRAZINE [Suspect]
     Indication: SCHIZOPHRENIA, PARANOID TYPE
     Route: 065
  5. HALOPERIDOL [Suspect]
     Indication: SCHIZOPHRENIA, PARANOID TYPE
     Route: 065

REACTIONS (1)
  - Rhabdomyolysis [Recovering/Resolving]
